FAERS Safety Report 11619244 (Version 1)
Quarter: 2015Q4

REPORT INFORMATION
  Report Type: Report from Study
  Country: US (occurrence: US)
  Receive Date: 20151012
  Receipt Date: 20151012
  Transmission Date: 20160304
  Serious: Yes (Other)
  Sender: FDA-Public Use
  Company Number: US-BIOGENIDEC-2015BI136382

PATIENT
  Sex: Female

DRUGS (1)
  1. AVONEX [Suspect]
     Active Substance: INTERFERON BETA-1A
     Indication: MULTIPLE SCLEROSIS
     Route: 030
     Dates: start: 20121213, end: 20141028

REACTIONS (4)
  - Feeling hot [Recovered/Resolved]
  - Breast cancer [Not Recovered/Not Resolved]
  - Discomfort [Recovered/Resolved]
  - Swelling [Recovered/Resolved]
